FAERS Safety Report 14479473 (Version 4)
Quarter: 2019Q1

REPORT INFORMATION
  Report Type: Spontaneous
  Country: US (occurrence: US)
  Receive Date: 20180202
  Receipt Date: 20190227
  Transmission Date: 20190417
  Serious: Yes (Other)
  Sender: FDA-Public Use
  Company Number: US-ASTRAZENECA-2018SE11812

PATIENT
  Age: 62 Year
  Sex: Female
  Weight: 101.2 kg

DRUGS (57)
  1. NEXIUM [Suspect]
     Active Substance: ESOMEPRAZOLE MAGNESIUM
     Indication: GASTROOESOPHAGEAL REFLUX DISEASE
     Route: 048
     Dates: start: 2008, end: 2012
  2. PRILOSEC [Suspect]
     Active Substance: OMEPRAZOLE MAGNESIUM
     Indication: GASTROOESOPHAGEAL REFLUX DISEASE
     Dosage: GENERIC
     Route: 048
     Dates: start: 20160516
  3. PRILOSEC [Suspect]
     Active Substance: OMEPRAZOLE MAGNESIUM
     Indication: GASTROOESOPHAGEAL REFLUX DISEASE
     Dosage: GENERIC
     Route: 065
     Dates: start: 20170622
  4. PROTONIX [Suspect]
     Active Substance: PANTOPRAZOLE SODIUM
     Indication: GASTROOESOPHAGEAL REFLUX DISEASE
     Route: 048
     Dates: start: 2012
  5. OXYCODONE [Concomitant]
     Active Substance: OXYCODONE
     Indication: PAIN
  6. AVALIDE [Concomitant]
     Active Substance: HYDROCHLOROTHIAZIDE\IRBESARTAN
     Indication: BLOOD PRESSURE MEASUREMENT
  7. TRAZODONE [Concomitant]
     Active Substance: TRAZODONE HYDROCHLORIDE
  8. LOPRESSOR [Concomitant]
     Active Substance: METOPROLOL TARTRATE
  9. NEXIUM [Suspect]
     Active Substance: ESOMEPRAZOLE MAGNESIUM
     Indication: GASTROOESOPHAGEAL REFLUX DISEASE
     Route: 048
     Dates: start: 2008, end: 2012
  10. PRILOSEC [Suspect]
     Active Substance: OMEPRAZOLE MAGNESIUM
     Indication: GASTROOESOPHAGEAL REFLUX DISEASE
     Dosage: GENERIC
     Route: 065
     Dates: start: 2013
  11. PREVACID [Suspect]
     Active Substance: LANSOPRAZOLE
     Indication: GASTROOESOPHAGEAL REFLUX DISEASE
     Route: 065
     Dates: start: 2014
  12. PREVPAC [Suspect]
     Active Substance: AMOXICILLIN\CLARITHROMYCIN\LANSOPRAZOLE
     Indication: GASTROOESOPHAGEAL REFLUX DISEASE
     Route: 048
     Dates: start: 20110930
  13. PROAIR HFA [Concomitant]
     Active Substance: ALBUTEROL SULFATE
     Indication: ASTHMA
  14. CYCLOBENZAPRINE HYDROCHLORIDE. [Concomitant]
     Active Substance: CYCLOBENZAPRINE HYDROCHLORIDE
     Indication: PAIN
     Route: 065
     Dates: start: 2014, end: 2016
  15. LASIX [Concomitant]
     Active Substance: FUROSEMIDE
     Route: 048
     Dates: start: 20180330
  16. PHENYLEPHRINE [Concomitant]
     Active Substance: PHENYLEPHRINE\PHENYLEPHRINE HYDROCHLORIDE
  17. ASPIRIN. [Concomitant]
     Active Substance: ASPIRIN
     Route: 048
     Dates: start: 20180323
  18. CEPHALEXIN. [Concomitant]
     Active Substance: CEPHALEXIN
     Dosage: 500 MG CAPSULE
     Route: 065
     Dates: start: 2014, end: 2016
  19. ROLAIDS [Concomitant]
     Active Substance: CALCIUM CARBONATE\MAGNESIUM HYDROXIDE
     Dosage: TWICE A DAY
     Route: 065
     Dates: start: 1980
  20. METRONIDAZOLE. [Concomitant]
     Active Substance: METRONIDAZOLE
     Indication: BACTERIAL INFECTION
     Route: 065
     Dates: start: 2015, end: 2016
  21. ESCITALOPRAM [Concomitant]
     Active Substance: ESCITALOPRAM OXALATE
     Route: 048
     Dates: start: 20180330
  22. ENOXAPARIN [Concomitant]
     Active Substance: ENOXAPARIN
  23. FUROSEMIDE. [Concomitant]
     Active Substance: FUROSEMIDE
     Route: 048
  24. NEXIUM [Suspect]
     Active Substance: ESOMEPRAZOLE MAGNESIUM
     Indication: GASTROOESOPHAGEAL REFLUX DISEASE
     Route: 048
     Dates: start: 20120103
  25. ZOLOFT [Concomitant]
     Active Substance: SERTRALINE HYDROCHLORIDE
  26. AZITHROMYCIN ANHYDROUS. [Concomitant]
     Active Substance: AZITHROMYCIN ANHYDROUS
     Indication: INFECTION
     Route: 065
     Dates: start: 2010, end: 2013
  27. ROSUVASTATIN CALCIUM. [Concomitant]
     Active Substance: ROSUVASTATIN CALCIUM
     Route: 048
  28. NEXIUM [Suspect]
     Active Substance: ESOMEPRAZOLE MAGNESIUM
     Indication: GASTROOESOPHAGEAL REFLUX DISEASE
     Dosage: GENERIC
     Route: 065
     Dates: start: 2008, end: 2012
  29. PLAVIX [Concomitant]
     Active Substance: CLOPIDOGREL BISULFATE
  30. PRAVASTATIN. [Concomitant]
     Active Substance: PRAVASTATIN
  31. AMLODIPINE [Concomitant]
     Active Substance: AMLODIPINE BESYLATE
     Dosage: 5 MG
  32. RANITIDINE. [Concomitant]
     Active Substance: RANITIDINE
     Dosage: 150 MG TABLET
  33. ERGOCALCIFEROL. [Concomitant]
     Active Substance: ERGOCALCIFEROL
     Indication: HYPOVITAMINOSIS
     Route: 065
  34. CLARITIN [Concomitant]
     Active Substance: LORATADINE
     Dosage: 10.0MG AS REQUIRED
     Route: 048
     Dates: start: 20160916
  35. TYLENOL [Concomitant]
     Active Substance: ACETAMINOPHEN
     Route: 048
     Dates: start: 20160916
  36. PREVPAC [Suspect]
     Active Substance: AMOXICILLIN\CLARITHROMYCIN\LANSOPRAZOLE
     Indication: GASTROOESOPHAGEAL REFLUX DISEASE
     Route: 048
     Dates: start: 2008, end: 2012
  37. VITAMIN D3 [Concomitant]
     Active Substance: CHOLECALCIFEROL
     Indication: HYPOVITAMINOSIS
     Route: 065
  38. ENTRESTO [Concomitant]
     Active Substance: SACUBITRIL\VALSARTAN
     Dosage: 49-51 MG, 1 BY MOUTH TWICE A DAY
     Route: 048
  39. SPIRONOLACTONE. [Concomitant]
     Active Substance: SPIRONOLACTONE
     Route: 048
     Dates: start: 20180402
  40. ONDANSETRON [Concomitant]
     Active Substance: ONDANSETRON
  41. ROSUVASTATIN. [Concomitant]
     Active Substance: ROSUVASTATIN
  42. METOPROLOL TARTRATE. [Concomitant]
     Active Substance: METOPROLOL TARTRATE
     Route: 048
  43. PREVPAC [Suspect]
     Active Substance: AMOXICILLIN\CLARITHROMYCIN\LANSOPRAZOLE
     Indication: GASTROOESOPHAGEAL REFLUX DISEASE
     Route: 048
     Dates: start: 2008, end: 2012
  44. PREVPAC [Suspect]
     Active Substance: AMOXICILLIN\CLARITHROMYCIN\LANSOPRAZOLE
     Indication: GASTROOESOPHAGEAL REFLUX DISEASE
     Route: 048
     Dates: start: 20110930
  45. ALPRAZOLAM. [Concomitant]
     Active Substance: ALPRAZOLAM
     Indication: ANXIETY
  46. ADVIL [Concomitant]
     Active Substance: IBUPROFEN
     Indication: OSTEOPOROSIS
     Route: 065
  47. MAALOX ANTACID [Concomitant]
     Active Substance: ALUMINUM HYDROXIDE\DIMETHICONE\MAGNESIUM HYDROXIDE
     Dosage: TWICE A DAY
     Route: 065
     Dates: start: 1980
  48. VITAMIN C [Concomitant]
     Active Substance: ASCORBIC ACID
     Route: 048
     Dates: start: 20121028
  49. NEXIUM [Suspect]
     Active Substance: ESOMEPRAZOLE MAGNESIUM
     Indication: GASTROOESOPHAGEAL REFLUX DISEASE
     Dosage: GENERIC
     Route: 065
     Dates: start: 2008, end: 2012
  50. NEXIUM [Suspect]
     Active Substance: ESOMEPRAZOLE MAGNESIUM
     Indication: GASTROOESOPHAGEAL REFLUX DISEASE
     Route: 048
     Dates: start: 20120103
  51. BUPROPION. [Concomitant]
     Active Substance: BUPROPION
     Indication: ANTIDEPRESSANT THERAPY
     Dosage: 150 MG TABLET
  52. AMBIEN [Concomitant]
     Active Substance: ZOLPIDEM TARTRATE
  53. TYLENOL PM [Concomitant]
     Active Substance: ACETAMINOPHEN\DIPHENHYDRAMINE
     Indication: SLEEP DISORDER
     Route: 065
  54. TUMS [Concomitant]
     Active Substance: CALCIUM CARBONATE
     Dosage: TWICE A DAY
     Route: 065
     Dates: start: 1990
  55. AMLODIPINE BESYLATE. [Concomitant]
     Active Substance: AMLODIPINE BESYLATE
     Indication: BLOOD PRESSURE MEASUREMENT
     Route: 065
  56. ESCITALOPRAM [Concomitant]
     Active Substance: ESCITALOPRAM OXALATE
     Dosage: ESCITALOPRAM OXALATE, 10 MG, 1/2 TAB BY MOUTH EVERY DAY
     Route: 048
  57. DOXYCYCLINE. [Concomitant]
     Active Substance: DOXYCYCLINE
     Indication: RASH
     Dates: start: 20140507

REACTIONS (3)
  - Renal injury [Unknown]
  - Renal impairment [Unknown]
  - Chronic kidney disease [Not Recovered/Not Resolved]

NARRATIVE: CASE EVENT DATE: 2010
